FAERS Safety Report 6726048-X (Version None)
Quarter: 2010Q2

REPORT INFORMATION
  Report Type: 
  Country: None (occurrence: None)
  Receive Date: 20100514
  Receipt Date: 20100512
  Transmission Date: 20101027
  Serious: Yes (Other)
  Sender: FDA-Public Use
  Company Number: DE-MERCK-1003DEU00010

PATIENT
  Age: 81 Year
  Sex: Male
  Weight: 69 kg

DRUGS (9)
  1. VYTORIN [Suspect]
     Indication: CORONARY ARTERY DISEASE
     Route: 048
     Dates: start: 20100119, end: 20100101
  2. VYTORIN [Suspect]
     Indication: ARTERIAL BYPASS OPERATION
     Route: 048
     Dates: start: 20100119, end: 20100101
  3. CLARITHROMYCIN [Suspect]
     Indication: PNEUMONIA
     Route: 065
     Dates: start: 20100101, end: 20100201
  4. ASPIRIN [Concomitant]
     Route: 048
  5. PHENPROCOUMON [Concomitant]
     Route: 048
  6. BISOPROLOL [Concomitant]
     Route: 048
  7. FUROSEMIDE [Concomitant]
     Route: 048
  8. XIPAMIDE [Concomitant]
     Route: 048
  9. AMOXICILLIN AND CLAVULANATE POTASSIUM [Concomitant]
     Indication: PNEUMONIA
     Route: 065
     Dates: start: 20100101, end: 20100201

REACTIONS (7)
  - ALANINE AMINOTRANSFERASE INCREASED [None]
  - ASPARTATE AMINOTRANSFERASE INCREASED [None]
  - BLOOD LACTATE DEHYDROGENASE INCREASED [None]
  - CARDIAC FAILURE [None]
  - DRUG INTERACTION [None]
  - PNEUMONIA [None]
  - RHABDOMYOLYSIS [None]
